FAERS Safety Report 26105105 (Version 1)
Quarter: 2025Q4

REPORT INFORMATION
  Report Type: Spontaneous
  Country: EU (occurrence: EU)
  Receive Date: 20251130
  Receipt Date: 20251130
  Transmission Date: 20260118
  Serious: Yes (Other)
  Sender: ALKEM
  Company Number: None

PATIENT
  Age: 15 Year
  Sex: Female

DRUGS (3)
  1. MYCOPHENOLATE MOFETIL [Suspect]
     Active Substance: MYCOPHENOLATE MOFETIL
     Indication: Immune system disorder
     Dosage: 600 MILLIGRAM/SQ. METER, BID
     Route: 065
     Dates: start: 2016
  2. AZATHIOPRINE [Suspect]
     Active Substance: AZATHIOPRINE
     Indication: Immune system disorder
     Dosage: 2 MILLIGRAM/KILOGRAM, QD
     Route: 048
  3. METHYLPREDNISOLONE [Suspect]
     Active Substance: METHYLPREDNISOLONE
     Indication: Immune system disorder
     Dosage: 1 MILLIGRAM/KILOGRAM, QD
     Route: 042
     Dates: start: 2015

REACTIONS (4)
  - Sepsis [Unknown]
  - Bone abscess [Unknown]
  - Gastrointestinal disorder [Recovered/Resolved]
  - Drug ineffective [Unknown]

NARRATIVE: CASE EVENT DATE: 20160101
